FAERS Safety Report 24350021 (Version 1)
Quarter: 2024Q3

REPORT INFORMATION
  Report Type: Spontaneous
  Country: IT (occurrence: IT)
  Receive Date: 20240923
  Receipt Date: 20240923
  Transmission Date: 20241017
  Serious: No
  Sender: ROCHE
  Company Number: None

PATIENT
  Age: 79 Year
  Sex: Female
  Weight: 75.0 kg

DRUGS (6)
  1. TRASTUZUMAB [Suspect]
     Active Substance: TRASTUZUMAB
     Indication: Invasive ductal breast carcinoma
     Dosage: ADVANCED TRASTUZ/PERTUZUMAB CHEMOTHERAPY PROTOCOL Q21 (DAY 1) (6TH/1ST 1 DAY) TRASTUZUMAB 450MG IN 2
     Route: 065
     Dates: start: 20240109, end: 20240109
  2. PICOTAMIDE [Concomitant]
     Active Substance: PICOTAMIDE
     Indication: Thrombocytosis
  3. LEVOTHYROXINE SODIUM [Concomitant]
     Active Substance: LEVOTHYROXINE SODIUM
     Indication: Hypothyroidism
  4. PERJETA [Concomitant]
     Active Substance: PERTUZUMAB
     Indication: Invasive ductal breast carcinoma
     Dosage: ADVANCED TRASTUZ/PERTUZUMAB CHEMOTHERAPY PROTOCOL Q21 (DAY 1) (6TH/1ST 1 DAY)?PERJETA 420MG IN 250ML
     Dates: start: 20240109, end: 20240109
  5. TRIMETON [Concomitant]
     Active Substance: CHLORPHENIRAMINE MALEATE
     Dosage: TRIMETON 10MG IN 100ML NACL DOPO REAZIONE ?IN SEGUITO ALLA REAZIONE ALLERGICA SOMMINISTRATO 10MG TRI
  6. TENORETIC [Concomitant]
     Active Substance: ATENOLOL\CHLORTHALIDONE
     Indication: Hypertension

REACTIONS (2)
  - Paraesthesia [Recovering/Resolving]
  - Feeling hot [Recovering/Resolving]

NARRATIVE: CASE EVENT DATE: 20240109
